FAERS Safety Report 12680108 (Version 2)
Quarter: 2016Q3

REPORT INFORMATION
  Report Type: Spontaneous
  Country: JP (occurrence: JP)
  Receive Date: 20160824
  Receipt Date: 20160824
  Transmission Date: 20161109
  Serious: Yes (Life-Threatening, Hospitalization, Other)
  Sender: FDA-Public Use
  Company Number: JP-SANOFI-AVENTIS-2012SA079957

PATIENT
  Age: 82 Year
  Sex: Male
  Weight: 49.4 kg

DRUGS (17)
  1. PREDNISOLONE. [Suspect]
     Active Substance: PREDNISOLONE
     Indication: THYMOMA
     Dosage: DOSE DECREASED
     Route: 065
  2. BLOPRESS [Concomitant]
     Active Substance: CANDESARTAN CILEXETIL
     Indication: ACCIDENTAL EXPOSURE TO PRODUCT
     Dates: end: 20121030
  3. BAYASPIRIN [Concomitant]
     Active Substance: ASPIRIN
     Indication: ACCIDENTAL EXPOSURE TO PRODUCT
     Dates: end: 20121030
  4. AMLODIPINE [Concomitant]
     Active Substance: AMLODIPINE BESYLATE
     Indication: ACCIDENTAL EXPOSURE TO PRODUCT
     Dates: end: 20121030
  5. DIART [Concomitant]
     Active Substance: AZOSEMIDE
     Indication: ACCIDENTAL EXPOSURE TO PRODUCT
     Dates: end: 20121030
  6. VILDAGLIPTIN [Concomitant]
     Active Substance: VILDAGLIPTIN
     Indication: ACCIDENTAL EXPOSURE TO PRODUCT
     Dates: end: 20121030
  7. DIGOXIN. [Concomitant]
     Active Substance: DIGOXIN
     Indication: ACCIDENTAL EXPOSURE TO PRODUCT
     Dates: end: 20121030
  8. MAGNESIUM OXIDE. [Concomitant]
     Active Substance: MAGNESIUM OXIDE
     Dosage: AFTER EACH MEAL
     Dates: start: 201208
  9. DAONIL [Suspect]
     Active Substance: GLYBURIDE
     Indication: ACCIDENTAL EXPOSURE TO PRODUCT
     Route: 048
     Dates: end: 20121030
  10. TAKEPRON [Concomitant]
     Active Substance: LANSOPRAZOLE
     Indication: ACCIDENTAL EXPOSURE TO PRODUCT
     Dosage: AFTER BREAKFAST
     Dates: start: 201208
  11. TAKEPRON [Concomitant]
     Active Substance: LANSOPRAZOLE
     Indication: ACCIDENTAL EXPOSURE TO PRODUCT
     Dates: end: 20121030
  12. DAONIL [Suspect]
     Active Substance: GLYBURIDE
     Indication: ACCIDENTAL EXPOSURE TO PRODUCT
     Route: 048
  13. PREDNISOLONE. [Suspect]
     Active Substance: PREDNISOLONE
     Indication: THYMOMA
     Dosage: AFTER BREAKFAST
     Route: 065
  14. PREDNISOLONE. [Suspect]
     Active Substance: PREDNISOLONE
     Indication: THYMOMA
     Dosage: AFTER BREAKFAST
     Route: 065
     Dates: start: 201108, end: 2012
  15. ALDACTONE-A [Concomitant]
     Active Substance: SPIRONOLACTONE
     Indication: ACCIDENTAL EXPOSURE TO PRODUCT
     Dates: end: 20121030
  16. MERCAZOLE [Concomitant]
     Active Substance: CARBIMAZOLE
     Indication: ACCIDENTAL EXPOSURE TO PRODUCT
     Dates: end: 20121030
  17. FERROMIA [Concomitant]
     Active Substance: FERROUS CITRATE
     Dosage: AFTER BREAKFAST AND DINNER
     Dates: start: 201208

REACTIONS (8)
  - Hypoglycaemic coma [Recovered/Resolved]
  - Accidental exposure to product [Unknown]
  - Malaise [Recovered/Resolved]
  - Adrenal insufficiency [Unknown]
  - Altered state of consciousness [Recovered/Resolved]
  - Respiratory disorder [Recovered/Resolved]
  - Hypoglycaemia [Recovered/Resolved]
  - Blood cortisol increased [Unknown]

NARRATIVE: CASE EVENT DATE: 20121029
